FAERS Safety Report 7288175-0 (Version None)
Quarter: 2011Q1

REPORT INFORMATION
  Report Type: 
  Country: None (occurrence: None)
  Receive Date: 20110211
  Receipt Date: 20110207
  Transmission Date: 20110831
  Serious: Yes (Life-Threatening, Hospitalization)
  Sender: FDA-Public Use
  Company Number: US-JNJFOC-20110202673

PATIENT

DRUGS (1)
  1. LEVAQUIN [Suspect]
     Indication: POST PROCEDURAL COMPLICATION
     Route: 065

REACTIONS (2)
  - HYPOAESTHESIA [None]
  - CEREBROVASCULAR ACCIDENT [None]
